FAERS Safety Report 6540862-5 (Version None)
Quarter: 2010Q1

REPORT INFORMATION
  Report Type: 
  Country: None (occurrence: None)
  Receive Date: 20100118
  Receipt Date: 20100106
  Transmission Date: 20100710
  Serious: Yes (Hospitalization, Other)
  Sender: FDA-Public Use
  Company Number: US-ELI_LILLY_AND_COMPANY-US201001001050

PATIENT
  Age: 51 Year
  Sex: Female

DRUGS (4)
  1. EFFIENT [Suspect]
     Indication: ANGINA UNSTABLE
     Dosage: UNK, UNK
     Dates: start: 20091223
  2. CRESTOR [Concomitant]
     Indication: HYPERCHOLESTEROLAEMIA
     Dosage: 40 MG, UNK
  3. LISINOPRIL [Concomitant]
     Indication: HYPERTENSION
  4. RANEXA [Concomitant]

REACTIONS (2)
  - ELECTROCARDIOGRAM QT PROLONGED [None]
  - OFF LABEL USE [None]
